FAERS Safety Report 8623773-0 (Version None)
Quarter: 2012Q3

REPORT INFORMATION
  Report Type: 
  Country: None (occurrence: None)
  Receive Date: 20120827
  Receipt Date: 20120814
  Transmission Date: 20120928
  Serious: Yes (Hospitalization)
  Sender: FDA-Public Use
  Company Number: US-VERTEX PHARMACEUTICAL INC.-2012-019727

PATIENT
  Age: 60 Year
  Sex: Male
  Weight: 34.5 kg

DRUGS (12)
  1. INCIVEK [Suspect]
     Indication: HEPATITIS C
     Dosage: 1125 MG, TID
     Route: 048
     Dates: start: 20120508
  2. FAMOTIDINE [Concomitant]
     Dosage: 20 MG, QD
     Route: 048
  3. CALCIUM CARBONATE [Concomitant]
     Dosage: 500 MG, TID
     Route: 048
  4. LEVOTHYROXINE SODIUM [Concomitant]
     Dosage: 12.5 A?G, UNK
     Route: 048
  5. PEGINTERFERON ALFA-2A [Concomitant]
     Indication: HEPATITIS C
     Dosage: 180 UNK, UNK
     Route: 058
     Dates: start: 20120805
  6. RIBAVIRIN [Concomitant]
     Dosage: 1200 MG, QD
     Route: 048
  7. ASPIRIN [Concomitant]
     Dosage: 2 DF, QD
     Route: 048
  8. ATRIPLA [Concomitant]
     Dosage: 1 DF, QD
     Route: 048
  9. DIAZEPAM [Concomitant]
     Dosage: 10 MG, QD
     Route: 048
  10. HALDOL [Concomitant]
     Dosage: 3 MG, UNK
     Route: 048
  11. IBUPROFEN [Concomitant]
     Dosage: 800 MG, UNK
  12. COGENTIN [Concomitant]
     Dosage: 2 MG, QD
     Route: 048

REACTIONS (4)
  - OFF LABEL USE [None]
  - SMALL INTESTINAL OBSTRUCTION [None]
  - ABDOMINAL PAIN [None]
  - ABNORMAL FAECES [None]
